FAERS Safety Report 8652884 (Version 4)
Quarter: 2012Q4

REPORT INFORMATION
  Report Type: 
  Country: JP (occurrence: JP)
  Receive Date: 20120706
  Receipt Date: 20121102
  Transmission Date: 20130627
  Serious: Yes (Hospitalization, Other)
  Sender: FDA-Public Use
  Company Number: JP-JNJFOC-20120700168

PATIENT
  Age: 39 Year
  Sex: Male

DRUGS (7)
  1. RISPERDAL [Suspect]
     Indication: SCHIZOPHRENIA
     Route: 048
     Dates: start: 20120628
  2. RISPERDAL [Suspect]
     Indication: SCHIZOPHRENIA
     Route: 048
     Dates: start: 201202, end: 20120628
  3. RISPERDAL [Suspect]
     Indication: SCHIZOPHRENIA
     Route: 048
     Dates: start: 2006, end: 201202
  4. WINTERMIN [Concomitant]
     Indication: SCHIZOPHRENIA
     Route: 048
     Dates: start: 2006, end: 20120628
  5. PALOLACTIN [Concomitant]
     Indication: TREMOR
     Route: 048
     Dates: start: 2006
  6. TRIHEXYPHENIDYL HYDROCHLORIDE [Concomitant]
     Indication: TREMOR
     Route: 048
     Dates: start: 2006
  7. RIVOTRIL [Concomitant]
     Indication: ANXIETY
     Route: 048
     Dates: start: 2006

REACTIONS (4)
  - Deep vein thrombosis [Recovering/Resolving]
  - Pulmonary embolism [Recovering/Resolving]
  - Hallucination [Recovered/Resolved]
  - Delusion [Recovered/Resolved]
